FAERS Safety Report 10260077 (Version 2)
Quarter: 2014Q2

REPORT INFORMATION
  Report Type: Other
  Country: CA (occurrence: CA)
  Receive Date: 20140625
  Receipt Date: 20140625
  Transmission Date: 20141212
  Serious: Yes (Hospitalization, Other)
  Sender: FDA-Public Use
  Company Number: CA-GSKPPD-2014GSK022226

PATIENT
  Age: 67 Year
  Sex: Female

DRUGS (4)
  1. AVANDIA [Suspect]
     Indication: DIABETES MELLITUS
     Dosage: AVANDIA WAS NOT LISTED AMONG THE PATIENT^S DISCHARGE RECORDS.
     Route: 048
  2. LASIX [Concomitant]
     Route: 048
  3. PLAVIX [Concomitant]
     Route: 048
  4. ASA [Concomitant]
     Route: 048

REACTIONS (4)
  - Myocardial ischaemia [Recovered/Resolved]
  - Myocardial infarction [Recovered/Resolved]
  - Ejection fraction abnormal [Recovered/Resolved]
  - Cardiac failure congestive [None]
